FAERS Safety Report 4754546-7 (Version None)
Quarter: 2005Q3

REPORT INFORMATION
  Report Type: 
  Country: None (occurrence: None)
  Receive Date: 20050825
  Receipt Date: 20050825
  Transmission Date: 20060218
  Serious: Yes (Disabling)
  Sender: FDA-Public Use
  Company Number: None

PATIENT
  Sex: Male
  Weight: 90.7194 kg

DRUGS (2)
  1. ALBUTEROL [Suspect]
     Indication: ASTHMA
     Dosage: 2X 180 MCG   4 HOURS   INHAL  (DURATION: LESS THAN 2 WEEKS)
     Route: 055
  2. ALBUTEROL SULFATE [Concomitant]

REACTIONS (2)
  - DYSPNOEA [None]
  - FATIGUE [None]
